FAERS Safety Report 9603040 (Version 1)
Quarter: 2013Q4

REPORT INFORMATION
  Report Type: Spontaneous
  Country: GB (occurrence: GB)
  Receive Date: 20131007
  Receipt Date: 20131007
  Transmission Date: 20140711
  Serious: Yes (Life-Threatening, Hospitalization, Other)
  Sender: FDA-Public Use
  Company Number: GB-TEVA-436483USA

PATIENT
  Age: 74 Year
  Sex: Male
  Weight: 84 kg

DRUGS (4)
  1. LEVACT [Suspect]
     Indication: CHRONIC LYMPHOCYTIC LEUKAEMIA
     Dosage: UNKNOWN/D
     Route: 042
     Dates: start: 20130308, end: 20130404
  2. LOSARTAN [Concomitant]
  3. OMEPRAZOLE [Concomitant]
  4. ROSUVASTATIN [Concomitant]

REACTIONS (15)
  - Acute coronary syndrome [Recovered/Resolved]
  - Myocardial ischaemia [Unknown]
  - Chest pain [Unknown]
  - Coronary artery stenosis [Unknown]
  - Hyperpyrexia [Unknown]
  - Hypotension [Unknown]
  - Pyrexia [Unknown]
  - Hypersensitivity [Unknown]
  - Hypoxia [Unknown]
  - Malaise [Unknown]
  - Ischaemia [Unknown]
  - Acute myocardial infarction [Unknown]
  - Chills [Unknown]
  - Troponin increased [Unknown]
  - Chills [Unknown]
